FAERS Safety Report 8806604 (Version 1)
Quarter: 2012Q4

REPORT INFORMATION
  Report Type: Spontaneous
  Country: ES (occurrence: None)
  Receive Date: 20120919
  Receipt Date: 20120919
  Transmission Date: 20130627
  Serious: Yes (Other)
  Sender: FDA-Public Use
  Company Number: 2012AP002962

PATIENT
  Age: 20 Year
  Sex: Male

DRUGS (1)
  1. PAROXETINE [Suspect]
     Indication: MAJOR DEPRESSIVE DISORDER NOS

REACTIONS (5)
  - Lower gastrointestinal haemorrhage [None]
  - Tremor [None]
  - Headache [None]
  - International normalised ratio increased [None]
  - Activated partial thromboplastin time prolonged [None]
